FAERS Safety Report 5124943-9 (Version None)
Quarter: 2006Q4

REPORT INFORMATION
  Report Type: 
  Country: None (occurrence: None)
  Receive Date: 20061011
  Receipt Date: 20060825
  Transmission Date: 20070319
  Serious: Yes (Hospitalization, Other)
  Sender: FDA-Public Use
  Company Number: US-AMGEN-US191526

PATIENT
  Sex: Male
  Weight: 59 kg

DRUGS (2)
  1. EPOGEN [Suspect]
     Indication: RENAL FAILURE CHRONIC
     Route: 058
     Dates: start: 20050503
  2. ARANESP [Suspect]
     Indication: RENAL FAILURE CHRONIC
     Route: 058
     Dates: start: 20040811, end: 20060627

REACTIONS (5)
  - APLASIA PURE RED CELL [None]
  - BONE MARROW FAILURE [None]
  - CHEST PAIN [None]
  - THERAPEUTIC RESPONSE DECREASED [None]
  - THYMOMA [None]
